FAERS Safety Report 10862761 (Version 3)
Quarter: 2015Q3

REPORT INFORMATION
  Report Type: Report from Study
  Country: US (occurrence: US)
  Receive Date: 20150223
  Receipt Date: 20150810
  Transmission Date: 20151125
  Serious: Yes (Death, Life-Threatening, Hospitalization, Disabling)
  Sender: FDA-Public Use
  Company Number: US-CELGENE-USA-2014122147

PATIENT
  Age: 68 Year
  Sex: Female
  Weight: 68.1 kg

DRUGS (24)
  1. REVLIMID [Suspect]
     Active Substance: LENALIDOMIDE
     Indication: B-CELL LYMPHOMA
     Dosage: 5 MILLIGRAM
     Route: 048
     Dates: start: 20140422, end: 20140429
  2. RITUXIMAB [Suspect]
     Active Substance: RITUXIMAB
     Indication: B-CELL LYMPHOMA
     Route: 041
     Dates: start: 20140415, end: 20140923
  3. CALTRATE WITH VITAMIN D [Concomitant]
     Active Substance: CALCIUM CARBONATE\VITAMIN D
     Indication: MINERAL SUPPLEMENTATION
     Dosage: 1 TABLET
     Route: 048
  4. FLAGYL [Concomitant]
     Active Substance: METRONIDAZOLE\METRONIDAZOLE HYDROCHLORIDE
     Indication: PRODUCT USED FOR UNKNOWN INDICATION
     Route: 065
  5. PROTONIX [Concomitant]
     Active Substance: PANTOPRAZOLE SODIUM
     Indication: PRODUCT USED FOR UNKNOWN INDICATION
     Route: 065
  6. LEUKINE [Concomitant]
     Active Substance: SARGRAMOSTIM
     Indication: PRODUCT USED FOR UNKNOWN INDICATION
     Route: 065
  7. DAPTOMYCIN. [Concomitant]
     Active Substance: DAPTOMYCIN
     Indication: PRODUCT USED FOR UNKNOWN INDICATION
     Route: 065
  8. ALBUMIN [Concomitant]
     Active Substance: ALBUMIN (HUMAN)
     Indication: PRODUCT USED FOR UNKNOWN INDICATION
     Dosage: 300 MILLIGRAM
     Route: 065
  9. IDELALISIB [Suspect]
     Active Substance: IDELALISIB
     Route: 048
     Dates: start: 20140415, end: 20141130
  10. IDELALISIB [Suspect]
     Active Substance: IDELALISIB
     Route: 048
     Dates: start: 20140701
  11. IDELALISIB [Suspect]
     Active Substance: IDELALISIB
     Route: 048
     Dates: start: 20141111, end: 20141130
  12. MAXIPIME [Concomitant]
     Active Substance: CEFEPIME HYDROCHLORIDE
     Indication: PRODUCT USED FOR UNKNOWN INDICATION
     Route: 065
  13. LIPITOR [Concomitant]
     Active Substance: ATORVASTATIN CALCIUM
     Indication: BLOOD CHOLESTEROL
     Dosage: 5 MILLIGRAM
     Route: 048
  14. IDELALISIB [Suspect]
     Active Substance: IDELALISIB
     Indication: B-CELL LYMPHOMA
     Route: 048
     Dates: start: 20140415
  15. ASPIRIN. [Concomitant]
     Active Substance: ASPIRIN
     Indication: PRODUCT USED FOR UNKNOWN INDICATION
     Dosage: 81 MILLIGRAM
     Route: 048
  16. CLIMARA [Concomitant]
     Active Substance: ESTRADIOL
     Indication: HORMONE REPLACEMENT THERAPY
     Route: 065
  17. VITAMIN C [Concomitant]
     Active Substance: ASCORBIC ACID
     Indication: PRODUCT USED FOR UNKNOWN INDICATION
     Dosage: 1000 MILLIGRAM
     Route: 048
  18. DIFLUCAN [Concomitant]
     Active Substance: FLUCONAZOLE
     Indication: PRODUCT USED FOR UNKNOWN INDICATION
     Route: 065
  19. CATAPRES [Concomitant]
     Active Substance: CLONIDINE HYDROCHLORIDE
     Indication: PRODUCT USED FOR UNKNOWN INDICATION
     Route: 065
  20. PRILOSEC [Concomitant]
     Active Substance: OMEPRAZOLE MAGNESIUM
     Indication: GASTROOESOPHAGEAL REFLUX DISEASE
     Route: 048
  21. SOLU-CORTEF [Concomitant]
     Active Substance: HYDROCORTISONE SODIUM SUCCINATE
     Indication: PRODUCT USED FOR UNKNOWN INDICATION
     Route: 065
  22. BICARBONATE [Concomitant]
     Active Substance: BICARBONATE ION
     Indication: PRODUCT USED FOR UNKNOWN INDICATION
     Route: 041
  23. POTASSIUM [Concomitant]
     Active Substance: POTASSIUM
     Indication: PRODUCT USED FOR UNKNOWN INDICATION
     Route: 065
  24. HYDRALAZINE [Concomitant]
     Active Substance: HYDRALAZINE HYDROCHLORIDE
     Indication: PRODUCT USED FOR UNKNOWN INDICATION
     Route: 041

REACTIONS (4)
  - Acute kidney injury [Not Recovered/Not Resolved]
  - Respiratory failure [Fatal]
  - Colitis [Not Recovered/Not Resolved]
  - Thrombocytopenia [Not Recovered/Not Resolved]

NARRATIVE: CASE EVENT DATE: 20141130
